FAERS Safety Report 23950418 (Version 1)
Quarter: 2024Q2

REPORT INFORMATION
  Report Type: Spontaneous
  Country: US (occurrence: US)
  Receive Date: 20240607
  Receipt Date: 20240607
  Transmission Date: 20240716
  Serious: No
  Sender: FDA-Public Use
  Company Number: US-Saptalis Pharmaceuticals LLC-2157885

PATIENT
  Sex: Female
  Weight: 55 kg

DRUGS (1)
  1. TRIAMCINOLONE ACETONIDE [Suspect]
     Active Substance: TRIAMCINOLONE ACETONIDE
     Indication: Ichthyosis
     Route: 061

REACTIONS (1)
  - Drug ineffective [Unknown]
